FAERS Safety Report 5423720-9 (Version None)
Quarter: 2007Q3

REPORT INFORMATION
  Report Type: 
  Country: None (occurrence: None)
  Receive Date: 20070727
  Receipt Date: 20060118
  Transmission Date: 20080115
  Serious: Yes (Hospitalization)
  Sender: FDA-Public Use
  Company Number: THYM-10853

PATIENT
  Age: 80 Year
  Sex: Female
  Weight: 61 kg

DRUGS (11)
  1. THYMOGLOBULIN [Suspect]
     Indication: DRUG USE FOR UNKNOWN INDICATION
     Dates: start: 20051108, end: 20051114
  2. SYNTHROID [Concomitant]
  3. NEXIUM [Concomitant]
  4. LOPRESSOR [Concomitant]
  5. LISINOPRIL [Concomitant]
  6. FOSAMAX [Concomitant]
  7. NORVASC [Concomitant]
  8. HYDROCHLOROTHIAZIDE [Concomitant]
  9. CALTRATE [Concomitant]
  10. CYCLOSPORINE [Concomitant]
  11. PREDNISONE TAB [Concomitant]

REACTIONS (1)
  - SPINAL COMPRESSION FRACTURE [None]
